FAERS Safety Report 21279875 (Version 1)
Quarter: 2022Q3

REPORT INFORMATION
  Report Type: Spontaneous
  Country: US (occurrence: US)
  Receive Date: 20220901
  Receipt Date: 20220901
  Transmission Date: 20221027
  Serious: No
  Sender: FDA-Public Use
  Company Number: US-GSKCCFUS-Case-01472169_AE-84177

PATIENT
  Sex: Female

DRUGS (2)
  1. AMERGE [Suspect]
     Active Substance: NARATRIPTAN HYDROCHLORIDE
     Indication: Migraine
     Dosage: UNK, 2.5 MG TABLET
  2. NARATRIPTAN [Suspect]
     Active Substance: NARATRIPTAN HYDROCHLORIDE
     Indication: Migraine
     Dosage: UNK

REACTIONS (3)
  - Abdominal pain upper [Recovered/Resolved]
  - Malaise [Recovered/Resolved]
  - Drug ineffective [Unknown]
